FAERS Safety Report 6207119-3 (Version None)
Quarter: 2009Q2

REPORT INFORMATION
  Report Type: 
  Country: None (occurrence: None)
  Receive Date: 20090528
  Receipt Date: 20090105
  Transmission Date: 20091009
  Serious: Yes (Other)
  Sender: FDA-Public Use
  Company Number: US-PFIZER INC-2009151456

PATIENT
  Sex: Female
  Weight: 89.342 kg

DRUGS (9)
  1. SOLU-MEDROL [Suspect]
     Dosage: UNK
     Route: 050
     Dates: start: 20080817, end: 20080817
  2. NIASPAN [Suspect]
     Dosage: 500 MG, AT BED TIME
     Route: 048
     Dates: start: 20080817
  3. DEFLAZACORT [Concomitant]
     Dosage: 0.05 MG, AT DINNER
     Route: 048
  4. METFORMIN [Concomitant]
     Dosage: 500 MG, AT DINNER
     Route: 048
  5. LISINOPRIL [Concomitant]
     Dosage: 40 MG, 1X/DAY
     Route: 048
  6. ALL OTHER THERAPEUTIC PRODUCTS [Concomitant]
     Dosage: DAILY
     Route: 048
  7. FISH OIL [Concomitant]
     Dosage: 1 TABLET, DAILY
     Route: 048
  8. ASCORBIC ACID [Concomitant]
     Dosage: 500MG IN AM, 1000MG IN PM
     Route: 048
  9. CLOPIDOGREL [Concomitant]
     Dosage: 75 MG, AT BED TIME
     Route: 048

REACTIONS (8)
  - BLOOD GLUCOSE INCREASED [None]
  - BURNING SENSATION [None]
  - CHEST DISCOMFORT [None]
  - DYSPNOEA [None]
  - ERYTHEMA [None]
  - PRURITUS [None]
  - SWELLING [None]
  - URTICARIA [None]
